FAERS Safety Report 5153685-9 (Version None)
Quarter: 2006Q4

REPORT INFORMATION
  Report Type: 
  Country: None (occurrence: None)
  Receive Date: 20061114
  Receipt Date: 20061102
  Transmission Date: 20070319
  Serious: Yes (Hospitalization)
  Sender: FDA-Public Use
  Company Number: MEDI-0004816

PATIENT
  Age: 45 Year
  Sex: Female
  Weight: 67 kg

DRUGS (7)
  1. ETHYOL [Suspect]
     Dosage: SEE IMAGE
     Dates: start: 20060225, end: 20060225
  2. MELPHALAN (MELPHALAN) [Concomitant]
  3. PANTOPRAZOLE SODIUM [Concomitant]
  4. ACYCLOVIR [Concomitant]
  5. AMPHO MORONAL (AMPHOTERICIN B) [Concomitant]
  6. FORTECORTIN (DEXAMETHASONE) [Concomitant]
  7. UNKNOWN DRUG [Concomitant]

REACTIONS (4)
  - CHILLS [None]
  - DERMATITIS ALLERGIC [None]
  - PYREXIA [None]
  - RASH PAPULAR [None]
